FAERS Safety Report 4634332-9 (Version None)
Quarter: 2005Q2

REPORT INFORMATION
  Report Type: 
  Country: None (occurrence: None)
  Receive Date: 20050413
  Receipt Date: 20050321
  Transmission Date: 20051028
  Serious: Yes (Other)
  Sender: FDA-Public Use
  Company Number: GBWYE536629MAR05

PATIENT
  Sex: Female

DRUGS (1)
  1. MONOCOR (BISOPROLOL, , 0) [Suspect]

REACTIONS (2)
  - ANAESTHETIC COMPLICATION [None]
  - CHEST PAIN [None]
